FAERS Safety Report 16108689 (Version 2)
Quarter: 2019Q2

REPORT INFORMATION
  Report Type: Spontaneous
  Country: PL (occurrence: PL)
  Receive Date: 20190323
  Receipt Date: 20190408
  Transmission Date: 20190711
  Serious: Yes (Other)
  Sender: FDA-Public Use
  Company Number: PL-ACCORD-114541

PATIENT
  Age: 65 Year
  Sex: Female

DRUGS (16)
  1. AMLODIPINE [Suspect]
     Active Substance: AMLODIPINE BESYLATE
     Indication: HYPERLIPIDAEMIA
     Dosage: 5 MG, 1X/DAY
  2. PROPAFENONE. [Interacting]
     Active Substance: PROPAFENONE
     Indication: HYPERLIPIDAEMIA
     Dosage: 450 MG, 1X/DAY
  3. LANSOPRAZOLE. [Interacting]
     Active Substance: LANSOPRAZOLE
     Indication: HYPERTENSION
     Dosage: 15 MG, 1X/DAY
  4. PERAZINE [Interacting]
     Active Substance: PERAZINE
     Indication: DEPRESSION
     Dosage: 75 MG, 1X/DAY
  5. VINPOCETINE [Interacting]
     Active Substance: VINPOCETINE
     Indication: DEPRESSION
     Dosage: 15 MG, 1X/DAY
  6. ATORVASTATIN/ATORVASTATIN CALCIUM [Interacting]
     Active Substance: ATORVASTATIN CALCIUM
     Indication: HYPERTENSION
     Dosage: 20 MG, 1X/DAY
  7. LANSOPRAZOLE. [Interacting]
     Active Substance: LANSOPRAZOLE
     Indication: ARRHYTHMIA SUPRAVENTRICULAR
     Dosage: 15 MG, 1X/DAY
  8. LANSOPRAZOLE. [Interacting]
     Active Substance: LANSOPRAZOLE
     Indication: HYPERLIPIDAEMIA
  9. LEVOMEPROMAZINE [Interacting]
     Active Substance: LEVOMEPROMAZINE
     Indication: DEPRESSION
     Dosage: 50 MG, AT BEDTIME
  10. SULPIRIDE [Interacting]
     Active Substance: SULPIRIDE
     Indication: DEPRESSION
     Dosage: 150 MG, 1X/DAY
  11. LAMOTRIGINE. [Interacting]
     Active Substance: LAMOTRIGINE
     Indication: DEPRESSION
     Dosage: 150 MG, 1X/DAY
  12. SERTRALINE [Interacting]
     Active Substance: SERTRALINE HYDROCHLORIDE
     Indication: DEPRESSION
     Dosage: 100 MG, 1X/DAY: 100 MG IN THE MORNING
  13. AMITRIPTYLINE [Interacting]
     Active Substance: AMITRIPTYLINE
     Indication: DEPRESSION
     Dosage: 225 MG, 1X/DAY
  14. ACETYLSALICYLIC ACID [Interacting]
     Active Substance: ASPIRIN
     Indication: HYPERTENSION
     Dosage: 75 MG, DAILY
  15. BUSPIRONE [Interacting]
     Active Substance: BUSPIRONE HYDROCHLORIDE
     Indication: DEPRESSION
     Dosage: 10 MG, 1X/DAY
  16. ENALAPRIL MALEATE AND HYDROCHLOROTHIAZIDE [Interacting]
     Active Substance: ENALAPRIL MALEATE\HYDROCHLOROTHIAZIDE
     Indication: HYPERLIPIDAEMIA
     Dosage: 16 MG, 1X/DAY (ENALAPRIL)?12.5 MG, 1X/DAY (HYDROCHLOROTHIAZIDE)

REACTIONS (25)
  - Sleep disorder [Recovering/Resolving]
  - Disturbance in attention [Recovering/Resolving]
  - Fatigue [Recovering/Resolving]
  - Bradykinesia [Recovered/Resolved]
  - Drug ineffective [Unknown]
  - Amnesia [Recovering/Resolving]
  - Anhedonia [Recovering/Resolving]
  - Overweight [Unknown]
  - Somnolence [Recovering/Resolving]
  - Anxiety [Recovered/Resolved]
  - Cognitive disorder [Recovering/Resolving]
  - Fall [Recovered/Resolved]
  - Tension [Recovering/Resolving]
  - Mental disorder [Recovering/Resolving]
  - Flat affect [Recovering/Resolving]
  - Dizziness [Recovered/Resolved]
  - Emotional disorder [Recovering/Resolving]
  - Depressed mood [Recovering/Resolving]
  - Psychomotor retardation [Recovering/Resolving]
  - Depression [Recovering/Resolving]
  - Anxiety [Unknown]
  - Balance disorder [Recovering/Resolving]
  - Drug interaction [Unknown]
  - Off label use [Unknown]
  - Extrapyramidal disorder [Recovering/Resolving]
